FAERS Safety Report 17388890 (Version 2)
Quarter: 2020Q1

REPORT INFORMATION
  Report Type: Spontaneous
  Country: US (occurrence: US)
  Receive Date: 20200207
  Receipt Date: 20200211
  Transmission Date: 20200409
  Serious: No
  Sender: FDA-Public Use
  Company Number: US-PFIZER INC-2020055026

PATIENT
  Age: 58 Year
  Sex: Male
  Weight: 93.89 kg

DRUGS (1)
  1. CYTOMEL [Suspect]
     Active Substance: LIOTHYRONINE SODIUM
     Indication: THYROID DISORDER
     Dosage: UNK, DAILY, [EVERY DAY, 25MCG, 1.5 PER DAY]

REACTIONS (1)
  - Feeling abnormal [Not Recovered/Not Resolved]
